FAERS Safety Report 8233323-9 (Version None)
Quarter: 2012Q1

REPORT INFORMATION
  Report Type: 
  Country: None (occurrence: None)
  Receive Date: 20120326
  Receipt Date: 20120316
  Transmission Date: 20120608
  Serious: Yes (Hospitalization)
  Sender: FDA-Public Use
  Company Number: US-BAYER-2012-026950

PATIENT
  Age: 43 Year
  Sex: Female

DRUGS (7)
  1. IBUPROFEN [Concomitant]
  2. TRAZODONE HCL [Concomitant]
     Indication: DEPRESSION
     Dosage: 300-400 MG AT BEDTIME
  3. SEROQUEL [Concomitant]
     Indication: DEPRESSION
     Dosage: 300-400 MG AT BEDTIME
  4. OMEPRAZOLE [Concomitant]
     Indication: GASTROOESOPHAGEAL REFLUX DISEASE
     Dosage: OVER THE COUNTER
  5. ACETAMINOPHEN [Concomitant]
  6. PAXIL [Concomitant]
     Indication: DEPRESSION
     Dosage: 30 MG AT BEDTIME
  7. YAZ [Suspect]
     Dosage: UNK

REACTIONS (1)
  - PULMONARY EMBOLISM [None]
